FAERS Safety Report 23561042 (Version 1)
Quarter: 2024Q1

REPORT INFORMATION
  Report Type: Spontaneous
  Country: CO (occurrence: CO)
  Receive Date: 20240224
  Receipt Date: 20240224
  Transmission Date: 20240410
  Serious: Yes (Other)
  Sender: FDA-Public Use
  Company Number: CO-JNJFOC-20240253220

PATIENT
  Sex: Male

DRUGS (1)
  1. ERLEADA [Suspect]
     Active Substance: APALUTAMIDE
     Indication: Prostate cancer metastatic
     Route: 048

REACTIONS (5)
  - Drug hypersensitivity [Unknown]
  - Dermatitis [Unknown]
  - Fluid retention [Unknown]
  - Rash [Unknown]
  - Pruritus [Unknown]
